FAERS Safety Report 9863892 (Version 1)
Quarter: 2014Q1

REPORT INFORMATION
  Report Type: Report from Study
  Country: JP (occurrence: JP)
  Receive Date: 20140203
  Receipt Date: 20140203
  Transmission Date: 20141002
  Serious: Yes (Death, Other)
  Sender: FDA-Public Use
  Company Number: JP-TAKEDA-2014TJP001073

PATIENT
  Age: 82 Year
  Sex: Female
  Weight: 37 kg

DRUGS (5)
  1. ALOGLIPTIN [Suspect]
     Indication: TYPE 2 DIABETES MELLITUS
     Dosage: 25 MG, QD
     Route: 048
     Dates: start: 20111028, end: 20111115
  2. ARTIST [Concomitant]
     Dosage: UNK
     Route: 048
  3. BAYASPIRIN [Concomitant]
     Route: 048
  4. AMLODIN [Concomitant]
     Dosage: START:BEFORE NESINA START, STOP DATE:BEFORE NESINA DISCONTINUATION
     Route: 048
  5. AVAPRO [Concomitant]
     Dosage: UNK
     Route: 048

REACTIONS (1)
  - Acute myocardial infarction [Fatal]
